FAERS Safety Report 6966130-5 (Version None)
Quarter: 2010Q3

REPORT INFORMATION
  Report Type: 
  Country: None (occurrence: None)
  Receive Date: 20100903
  Receipt Date: 20100825
  Transmission Date: 20110219
  Serious: Yes (Other)
  Sender: FDA-Public Use
  Company Number: PHHY2010US44745

PATIENT
  Sex: Female

DRUGS (27)
  1. SANDOSTATIN LAR [Suspect]
     Indication: ACROMEGALY
     Dosage: 30 MG, UNK
  2. SANDOSTATIN LAR [Suspect]
     Dosage: 40 MG,EVERY 04 WEEK
     Route: 030
     Dates: start: 20071029
  3. DILTIAZEM [Concomitant]
     Dosage: 240 MG, UNK
  4. ASPIRIN [Concomitant]
     Dosage: 235 MG, UNK
  5. ANTUSSIN COUGH SYRUP [Concomitant]
  6. VITAMIN E [Concomitant]
     Dosage: 400 UNIT, UNK
  7. COQ10 [Concomitant]
  8. MULTI-VITAMINS [Concomitant]
  9. FISH OIL [Concomitant]
  10. GARLIC [Concomitant]
  11. MINERALIN [Concomitant]
  12. SENNA-GEN [Concomitant]
  13. DOCUSATE SODIUM [Concomitant]
     Dosage: 100 MG, UNK
  14. VESICARE [Concomitant]
     Dosage: 05 MG, UNK
  15. ZOLOFT [Concomitant]
     Dosage: 150 MG, UNK
  16. IMIPRAMINE [Concomitant]
     Dosage: 25 MG, UNK
  17. CELEBREX [Concomitant]
     Dosage: 200 MG, UNK
  18. GLYCOLAX [Concomitant]
  19. METAMUCIL-2 [Concomitant]
  20. NEXIUM [Concomitant]
     Dosage: 40 MG, UNK
  21. VITAMIN D [Concomitant]
     Dosage: 1000 UNIT, UNK
  22. TOPROL-XL [Concomitant]
     Dosage: 25 MG, UNK
  23. QUINAPRIL [Concomitant]
     Dosage: 40 MG, UNK
  24. ACETAMINOPHEN [Concomitant]
  25. ASCORBIC ACID [Concomitant]
     Dosage: 500 MG, UNK
  26. GLUCOSAMINE [Concomitant]
     Dosage: 1500 MG, UNK
  27. LEVOTHYROXINE [Concomitant]
     Dosage: 112 MCG, UNK

REACTIONS (3)
  - HYPERTHYROIDISM [None]
  - INSULIN-LIKE GROWTH FACTOR INCREASED [None]
  - VITAMIN D DEFICIENCY [None]
